FAERS Safety Report 9683522 (Version 1)
Quarter: 2013Q4

REPORT INFORMATION
  Report Type: Report from Study
  Country: BR (occurrence: BR)
  Receive Date: 20131112
  Receipt Date: 20131112
  Transmission Date: 20140711
  Serious: Yes (Other)
  Sender: FDA-Public Use
  Company Number: PHHY2013BR127143

PATIENT
  Age: 7 Year
  Sex: Male
  Weight: 58 kg

DRUGS (5)
  1. EXJADE [Suspect]
     Indication: IRON OVERLOAD
     Dosage: 1 DF, UNK
     Route: 048
     Dates: start: 20060427
  2. EXJADE [Suspect]
     Dosage: 1 DF, UNK
     Route: 048
  3. MAREVAN [Concomitant]
     Dosage: 2.5 MG, DAILY
     Dates: start: 201205
  4. MAREVAN [Concomitant]
     Dosage: 5 MG, QW (ON WEDNESDAYS)
     Dates: start: 201305
  5. FOLIC ACID [Concomitant]
     Dosage: UNK UKN, UNK

REACTIONS (4)
  - Intracardiac thrombus [Unknown]
  - Drug administered to patient of inappropriate age [Unknown]
  - Serum ferritin increased [Recovered/Resolved]
  - Serum ferritin decreased [Recovered/Resolved]
